FAERS Safety Report 18425332 (Version 1)
Quarter: 2020Q4

REPORT INFORMATION
  Report Type: Spontaneous
  Country: US (occurrence: US)
  Receive Date: 20201026
  Receipt Date: 20201026
  Transmission Date: 20210114
  Serious: Yes (Hospitalization)
  Sender: FDA-Public Use
  Company Number: US-LUPIN PHARMACEUTICALS INC.-2020-07787

PATIENT
  Age: 23 Year
  Sex: Female
  Weight: 117 kg

DRUGS (6)
  1. LACOSAMIDE. [Interacting]
     Active Substance: LACOSAMIDE
     Indication: PARTIAL SEIZURES
     Dosage: 150 MILLIGRAM
     Route: 065
  2. TOPIRAMATE. [Concomitant]
     Active Substance: TOPIRAMATE
     Indication: PARTIAL SEIZURES
     Dosage: 200 MILLIGRAM
     Route: 065
  3. CLOBAZAM. [Suspect]
     Active Substance: CLOBAZAM
     Indication: PARTIAL SEIZURES
     Dosage: 25 MILLIGRAM
     Route: 065
  4. EPIDIOLEX [Interacting]
     Active Substance: CANNABIDIOL
     Dosage: 100 MG/ML SOLUTION
     Route: 065
  5. CLOBAZAM. [Interacting]
     Active Substance: CLOBAZAM
     Dosage: 30 MILLIGRAM
     Route: 065
  6. EPIDIOLEX [Interacting]
     Active Substance: CANNABIDIOL
     Indication: PARTIAL SEIZURES
     Dosage: 100 MG/ML SOLUTION
     Route: 065

REACTIONS (3)
  - Type IV hypersensitivity reaction [Unknown]
  - Drug interaction [Unknown]
  - Rash morbilliform [Recovered/Resolved]
